FAERS Safety Report 17231995 (Version 3)
Quarter: 2020Q2

REPORT INFORMATION
  Report Type: Spontaneous
  Country: US (occurrence: US)
  Receive Date: 20200103
  Receipt Date: 20200413
  Transmission Date: 20200713
  Serious: No
  Sender: FDA-Public Use
  Company Number: US-SA-2019SA362949

PATIENT
  Age: 65 Year
  Sex: Female

DRUGS (1)
  1. DUPIXENT [Suspect]
     Active Substance: DUPILUMAB
     Indication: ASTHMA
     Dosage: 300 MG, QOW
     Route: 058
     Dates: start: 20191218, end: 20200330

REACTIONS (5)
  - Sinusitis [Unknown]
  - Dyspnoea [Unknown]
  - Drug hypersensitivity [Unknown]
  - Cough [Unknown]
  - Malaise [Unknown]

NARRATIVE: CASE EVENT DATE: 201912
